FAERS Safety Report 12112849 (Version 1)
Quarter: 2016Q1

REPORT INFORMATION
  Report Type: Spontaneous
  Country: US (occurrence: US)
  Receive Date: 20160225
  Receipt Date: 20160225
  Transmission Date: 20160526
  Serious: Yes (Other)
  Sender: FDA-Public Use
  Company Number: US-CELGENEUS-USA-2016012842

PATIENT
  Age: 47 Year
  Sex: Male

DRUGS (3)
  1. HALDOL [Concomitant]
     Active Substance: HALOPERIDOL
     Indication: SCHIZOPHRENIA
     Route: 065
  2. STELARA [Concomitant]
     Active Substance: USTEKINUMAB
     Indication: PRODUCT USED FOR UNKNOWN INDICATION
     Route: 065
     Dates: start: 2016
  3. OTEZLA [Suspect]
     Active Substance: APREMILAST
     Indication: PSORIASIS
     Dosage: 60 MILLIGRAM
     Route: 048
     Dates: start: 20150911, end: 20160113

REACTIONS (2)
  - Pityriasis rubra pilaris [Not Recovered/Not Resolved]
  - Weight decreased [Unknown]

NARRATIVE: CASE EVENT DATE: 20160111
